FAERS Safety Report 8023907-5 (Version None)
Quarter: 2012Q1

REPORT INFORMATION
  Report Type: 
  Country: None (occurrence: None)
  Receive Date: 20120103
  Receipt Date: 20120103
  Transmission Date: 20120608
  Serious: No
  Sender: FDA-Public Use
  Company Number: None

PATIENT

DRUGS (1)
  1. CIPROFLOXACIN [Suspect]

REACTIONS (3)
  - NERVOUS SYSTEM DISORDER [None]
  - ANXIETY [None]
  - ILL-DEFINED DISORDER [None]
